FAERS Safety Report 10837816 (Version 1)
Quarter: 2015Q1

REPORT INFORMATION
  Report Type: Spontaneous
  Country: US (occurrence: US)
  Receive Date: 20150219
  Receipt Date: 20150219
  Transmission Date: 20150721
  Serious: No
  Sender: FDA-Public Use
  Company Number: US-GLAXOSMITHKLINE-US2015020225

PATIENT
  Age: 67 Year
  Sex: Female

DRUGS (12)
  1. FERROUS SULFATE [Concomitant]
     Active Substance: FERROUS SULFATE\FERROUS SULFATE, DRIED
  2. LOVAZA [Suspect]
     Active Substance: OMEGA-3-ACID ETHYL ESTERS
     Dosage: UNK UNK, QD
     Route: 048
     Dates: start: 2013
  3. CLARITIN [Concomitant]
     Active Substance: LORATADINE
  4. FLONASE [Concomitant]
     Active Substance: FLUTICASONE PROPIONATE
  5. LIPITOR [Concomitant]
     Active Substance: ATORVASTATIN CALCIUM
  6. BUMEX [Concomitant]
     Active Substance: BUMETANIDE
  7. LISINOPRIL. [Concomitant]
     Active Substance: LISINOPRIL
  8. OMEPRAZOLE. [Concomitant]
     Active Substance: OMEPRAZOLE
  9. SYNTHROID [Concomitant]
     Active Substance: LEVOTHYROXINE SODIUM
  10. PREMARIN VAGINAL [Concomitant]
     Active Substance: ESTROGENS, CONJUGATED
  11. NIACIN. [Concomitant]
     Active Substance: NIACIN
  12. WELCHOL [Concomitant]
     Active Substance: COLESEVELAM HYDROCHLORIDE

REACTIONS (2)
  - Dry eye [Not Recovered/Not Resolved]
  - Surgery [Unknown]
